FAERS Safety Report 14497420 (Version 1)
Quarter: 2018Q1

REPORT INFORMATION
  Report Type: Spontaneous
  Country: US (occurrence: US)
  Receive Date: 20180207
  Receipt Date: 20180207
  Transmission Date: 20180509
  Serious: No
  Sender: FDA-Public Use
  Company Number: US-MISSION PHARMACAL COMPANY-2041553

PATIENT
  Sex: Male

DRUGS (1)
  1. UROCIT-K [Suspect]
     Active Substance: POTASSIUM CITRATE
     Indication: NEPHROLITHIASIS
     Route: 065

REACTIONS (1)
  - Drug ineffective [Unknown]
